FAERS Safety Report 5173354-9 (Version None)
Quarter: 2006Q4

REPORT INFORMATION
  Report Type: 
  Country: None (occurrence: None)
  Receive Date: 20061214
  Receipt Date: 20061017
  Transmission Date: 20070319
  Serious: Yes (Hospitalization)
  Sender: FDA-Public Use
  Company Number: JP-BRISTOL-MYERS SQUIBB COMPANY-13551353

PATIENT
  Age: 73 Year
  Sex: Male

DRUGS (4)
  1. MEVALOTIN [Suspect]
     Indication: HYPERLIPIDAEMIA
     Route: 048
     Dates: start: 20060707, end: 20060908
  2. SELBEX [Concomitant]
     Indication: GASTRITIS
     Route: 048
     Dates: start: 20060118, end: 20060728
  3. NIZATIDINE [Concomitant]
     Indication: GASTRITIS
     Route: 048
     Dates: start: 20060530, end: 20060728
  4. BIO-THREE [Concomitant]
     Indication: ENTEROCOLITIS
     Route: 048
     Dates: start: 20060118, end: 20060728

REACTIONS (2)
  - LIVER DISORDER [None]
  - PNEUMONIA [None]
